FAERS Safety Report 9698850 (Version 1)
Quarter: 2013Q4

REPORT INFORMATION
  Report Type: Spontaneous
  Country: US (occurrence: US)
  Receive Date: 20131120
  Receipt Date: 20131120
  Transmission Date: 20140711
  Serious: No
  Sender: FDA-Public Use
  Company Number: US-TEVA-445313USA

PATIENT
  Age: 84 Year
  Sex: Male
  Weight: 88.53 kg

DRUGS (1)
  1. PROAIR HFA [Suspect]
     Indication: DYSPNOEA
     Dosage: 2 PUFFS EVERY 6 HOURS
     Route: 055

REACTIONS (1)
  - Wrong technique in drug usage process [Recovered/Resolved]
